FAERS Safety Report 6730247-0 (Version None)
Quarter: 2010Q2

REPORT INFORMATION
  Report Type: 
  Country: None (occurrence: None)
  Receive Date: 20100518
  Receipt Date: 20100508
  Transmission Date: 20101027
  Serious: Yes (Other)
  Sender: FDA-Public Use
  Company Number: US-JNJFOC-20100503253

PATIENT
  Age: 11 Year
  Sex: Male
  Weight: 30.39 kg

DRUGS (3)
  1. CHILDREN'S MOTRIN [Suspect]
     Route: 048
  2. CHILDREN'S MOTRIN [Suspect]
     Indication: PYREXIA
     Route: 048
  3. ALL OTHER THERAPEUTIC DRUG [Concomitant]

REACTIONS (3)
  - HALLUCINATION [None]
  - MOBILITY DECREASED [None]
  - PRODUCT QUALITY ISSUE [None]
